FAERS Safety Report 5902307-5 (Version None)
Quarter: 2008Q3

REPORT INFORMATION
  Report Type: 
  Country: None (occurrence: None)
  Receive Date: 20080929
  Receipt Date: 20080916
  Transmission Date: 20090109
  Serious: No
  Sender: FDA-Public Use
  Company Number: US-B.I. PHARMACEUTICALS,INC./RIDGEFIELD-2008-BP-13594BP

PATIENT
  Sex: Male

DRUGS (4)
  1. SPIRIVA [Suspect]
     Route: 055
  2. SINGULAIR [Concomitant]
     Dosage: 10MG
     Dates: start: 20070401
  3. ASPIRIN [Concomitant]
     Dosage: 81MG
  4. PREVALITE [Concomitant]

REACTIONS (1)
  - PROSTATOMEGALY [None]
